FAERS Safety Report 8125145-4 (Version None)
Quarter: 2012Q1

REPORT INFORMATION
  Report Type: 
  Country: None (occurrence: None)
  Receive Date: 20120209
  Receipt Date: 20120201
  Transmission Date: 20120608
  Serious: Yes (Hospitalization, Other)
  Sender: FDA-Public Use
  Company Number: JP-GENZYME-THYM-1002149

PATIENT
  Sex: Male
  Weight: 16 kg

DRUGS (54)
  1. THYMOGLOBULIN [Suspect]
     Indication: BONE MARROW CONDITIONING REGIMEN
     Dosage: 40 MG, QD
     Route: 042
     Dates: start: 20090622, end: 20090623
  2. FLOMOXEF SODIUM [Concomitant]
     Dosage: UNK
     Route: 065
     Dates: start: 20090717, end: 20090717
  3. MANGANESE CHLORIDE ZINC SULFATE COMBINED DRUG [Concomitant]
     Indication: PRODUCT USED FOR UNKNOWN INDICATION
     Dosage: UNK
     Route: 065
     Dates: start: 20090702, end: 20090717
  4. HYDROCORTISONE SODIUM SUCCINATE [Concomitant]
     Indication: PRODUCT USED FOR UNKNOWN INDICATION
     Dosage: UNK
     Route: 065
     Dates: start: 20090709, end: 20090709
  5. ITRACONAZOLE [Concomitant]
     Dosage: 16 ML, QD
     Route: 065
     Dates: start: 20090722, end: 20090728
  6. HEPARIN SODIUM [Concomitant]
     Indication: PRODUCT USED FOR UNKNOWN INDICATION
     Dosage: UNK
     Route: 065
     Dates: start: 20090622, end: 20090717
  7. HEPARIN SODIUM [Concomitant]
     Dosage: UNK
     Route: 065
     Dates: start: 20090718, end: 20090721
  8. FLUDARABINE PHOSPHATE [Concomitant]
     Indication: PRODUCT USED FOR UNKNOWN INDICATION
     Dosage: UNK
     Route: 065
     Dates: start: 20090622, end: 20090627
  9. HAPTOGLOBINS [Concomitant]
     Indication: PRODUCT USED FOR UNKNOWN INDICATION
     Dosage: UNK
     Route: 065
     Dates: start: 20090630, end: 20090630
  10. CANDESARTAN CILEXETIL [Concomitant]
     Indication: PRODUCT USED FOR UNKNOWN INDICATION
     Dosage: 2 MG, QD
     Route: 065
     Dates: start: 20090629, end: 20090731
  11. TACROLIMUS [Concomitant]
     Dosage: UNK
     Route: 065
     Dates: start: 20090701, end: 20090723
  12. CYCLOPHOSPHAMIDE [Concomitant]
     Dosage: UNK
     Route: 065
     Dates: start: 20090624, end: 20090627
  13. FLOMOXEF SODIUM [Concomitant]
     Indication: PRODUCT USED FOR UNKNOWN INDICATION
     Dosage: UNK
     Route: 065
     Dates: start: 20090625, end: 20090625
  14. RAMOSETRON HYDROCHLORIDE [Concomitant]
     Indication: PRODUCT USED FOR UNKNOWN INDICATION
     Dosage: UNK
     Route: 065
     Dates: start: 20090626, end: 20090627
  15. ITRACONAZOLE [Concomitant]
     Indication: PRODUCT USED FOR UNKNOWN INDICATION
     Dosage: 8 ML, QD
     Route: 065
     Dates: start: 20090721, end: 20090721
  16. TACROLIMUS [Concomitant]
     Dosage: 0.3 MG, BID
     Route: 065
     Dates: start: 20090728, end: 20090728
  17. SULFAMETHOPRIM [Concomitant]
     Indication: PRODUCT USED FOR UNKNOWN INDICATION
     Dosage: 0.75 G, BID
     Route: 065
     Dates: start: 20090729, end: 20090730
  18. HEPARIN SODIUM [Concomitant]
     Indication: PROPHYLAXIS
     Dosage: UNK
     Route: 065
     Dates: start: 20090621, end: 20090621
  19. HEPARIN SODIUM [Concomitant]
     Dosage: UNK
     Route: 065
     Dates: start: 20090727, end: 20090727
  20. MICAFUNGIN SODIUM [Concomitant]
     Indication: INFECTION PROPHYLAXIS
     Dosage: UNK
     Route: 065
     Dates: start: 20090626, end: 20090721
  21. RAMOSETRON HYDROCHLORIDE [Concomitant]
     Dosage: UNK
     Route: 065
     Dates: start: 20090629, end: 20090629
  22. MELPHALAN HYDROCHLORIDE [Concomitant]
     Indication: PRODUCT USED FOR UNKNOWN INDICATION
     Dosage: UNK
     Route: 065
     Dates: start: 20090628, end: 20090628
  23. LENOGRASTIM [Concomitant]
     Indication: COLONY STIMULATING FACTOR THERAPY
     Dosage: UNK
     Route: 065
     Dates: start: 20090705, end: 20090725
  24. URSODIOL [Concomitant]
     Dosage: 150 MG, BID
     Route: 065
     Dates: start: 20090626, end: 20090630
  25. URSODIOL [Concomitant]
     Dosage: 75 MG, BID
     Route: 065
     Dates: start: 20090701, end: 20090728
  26. WHITE PETROLEUM [Concomitant]
     Indication: PRODUCT USED FOR UNKNOWN INDICATION
     Dosage: UNK
     Route: 065
     Dates: start: 20090628, end: 20090628
  27. ITRACONAZOLE [Concomitant]
     Dosage: 8 ML, QD
     Route: 065
     Dates: start: 20090729, end: 20090731
  28. TACROLIMUS [Concomitant]
     Dosage: 1.4 MG, BID
     Route: 065
     Dates: start: 20090727, end: 20090727
  29. TACROLIMUS [Concomitant]
     Dosage: UNK
     Route: 065
     Dates: start: 20090629, end: 20090630
  30. HEPARIN SODIUM [Concomitant]
     Dosage: UNK
     Route: 065
     Dates: start: 20090724, end: 20090724
  31. HEPARIN SODIUM [Concomitant]
     Dosage: UNK
     Route: 065
     Dates: start: 20090731, end: 20090731
  32. GRANISETRON HYDROCHLORIDE [Concomitant]
     Indication: PRODUCT USED FOR UNKNOWN INDICATION
     Dosage: UNK
     Route: 065
     Dates: start: 20090622, end: 20090630
  33. METHYLPREDNISOLONE SODIUM SUCCINATE [Concomitant]
     Indication: PREMEDICATION
     Dosage: 15 MG, UNK
     Route: 065
     Dates: start: 20090622, end: 20090624
  34. FLOMOXEF SODIUM [Concomitant]
     Dosage: UNK
     Route: 065
     Dates: start: 20090626, end: 20090716
  35. METHOTREXATE [Concomitant]
     Indication: PRODUCT USED FOR UNKNOWN INDICATION
     Dosage: UNK
     Route: 065
     Dates: start: 20090701, end: 20090701
  36. METHOTREXATE [Concomitant]
     Dosage: UNK
     Route: 065
     Dates: start: 20090711, end: 20090711
  37. MIXED AMINO ACID CARBOHYDRATE ELECTROLYTE VITAMIN COMBINED DRUG [Concomitant]
     Indication: PRODUCT USED FOR UNKNOWN INDICATION
     Dosage: UNK
     Route: 065
     Dates: start: 20090702, end: 20090717
  38. URSODIOL [Concomitant]
     Indication: PROPHYLAXIS
     Dosage: 75 MG, BID
     Route: 065
     Dates: start: 20090622, end: 20090625
  39. TACROLIMUS [Concomitant]
     Dosage: 0.2 MG, BID
     Route: 065
     Dates: start: 20090729, end: 20090729
  40. THIOPENTAL SODIUM [Concomitant]
     Indication: PRODUCT USED FOR UNKNOWN INDICATION
     Dosage: UNK
     Route: 065
     Dates: start: 20090629, end: 20090630
  41. METHOTREXATE [Concomitant]
     Dosage: UNK
     Route: 065
     Dates: start: 20090703, end: 20090703
  42. HEPARIN [Concomitant]
     Indication: PRODUCT USED FOR UNKNOWN INDICATION
     Dosage: UNK
     Route: 065
     Dates: start: 20090701, end: 20090701
  43. AZULENE [Concomitant]
     Indication: PRODUCT USED FOR UNKNOWN INDICATION
     Dosage: UNK
     Route: 065
     Dates: start: 20090703, end: 20090703
  44. TACROLIMUS [Concomitant]
     Indication: PROPHYLAXIS AGAINST GRAFT VERSUS HOST DISEASE
     Dosage: 0.4 MG, BID
     Route: 065
     Dates: start: 20090724, end: 20090726
  45. CHLORPHENIRAMINE MALEATE [Concomitant]
     Indication: PREMEDICATION
     Dosage: 2.5 MG, QD
     Route: 065
     Dates: start: 20090622, end: 20090624
  46. CHLORPHENIRAMINE MALEATE [Concomitant]
     Indication: PRODUCT USED FOR UNKNOWN INDICATION
     Dosage: UNK MG, QD
     Route: 065
     Dates: start: 20090709, end: 20090709
  47. CYCLOPHOSPHAMIDE [Concomitant]
     Indication: PRODUCT USED FOR UNKNOWN INDICATION
     Dosage: UNK
     Route: 065
     Dates: start: 20090624, end: 20090627
  48. MESNA [Concomitant]
     Indication: PRODUCT USED FOR UNKNOWN INDICATION
     Dosage: UNK
     Route: 065
     Dates: start: 20090624, end: 20090627
  49. ACYCLOVIR [Concomitant]
     Indication: ANTIVIRAL PROPHYLAXIS
     Dosage: UNK
     Route: 065
     Dates: start: 20090701, end: 20090726
  50. SODIUM PICOSULFATE [Concomitant]
     Indication: CONSTIPATION
     Dosage: 10 ML, UNK
     Route: 065
     Dates: start: 20090628, end: 20090628
  51. AZULENE [Concomitant]
     Dosage: UNK
     Route: 065
     Dates: start: 20090705, end: 20090705
  52. MIDAZOLAM [Concomitant]
     Indication: PRODUCT USED FOR UNKNOWN INDICATION
     Dosage: UNK
     Route: 065
     Dates: start: 20090629, end: 20090630
  53. METHOTREXATE [Concomitant]
     Dosage: UNK
     Route: 065
     Dates: start: 20090706, end: 20090706
  54. ACYCLOVIR [Concomitant]
     Dosage: UNK
     Route: 065
     Dates: start: 20090727, end: 20090727

REACTIONS (4)
  - INFECTION [None]
  - ACUTE GRAFT VERSUS HOST DISEASE IN SKIN [None]
  - IDIOPATHIC THROMBOCYTOPENIC PURPURA [None]
  - HAEMOLYTIC ANAEMIA [None]
